FAERS Safety Report 7734896-2 (Version None)
Quarter: 2011Q3

REPORT INFORMATION
  Report Type: 
  Country: None (occurrence: None)
  Receive Date: 20110907
  Receipt Date: 20110824
  Transmission Date: 20111222
  Serious: Yes (Hospitalization)
  Sender: FDA-Public Use
  Company Number: PHHY2011MX73147

PATIENT
  Sex: Male

DRUGS (3)
  1. DIOVAN HCT [Suspect]
     Indication: HYPERTENSION
     Dosage: 2 DF (320/25 MG), DAILY
     Dates: start: 20110626
  2. CITICOLINE [Concomitant]
     Indication: APHASIA
     Dosage: 2 DF, PER DAY
     Route: 048
     Dates: start: 20110730
  3. PRODAXAR [Concomitant]
     Indication: HYPERTENSION
     Dosage: 1 DF, PER DAY
     Dates: start: 20110730

REACTIONS (1)
  - MYOCARDIAL INFARCTION [None]
